FAERS Safety Report 6235764-8 (Version None)
Quarter: 2009Q2

REPORT INFORMATION
  Report Type: 
  Country: None (occurrence: None)
  Receive Date: 20090617
  Receipt Date: 20090617
  Transmission Date: 20091009
  Serious: Yes (Other)
  Sender: FDA-Public Use
  Company Number: None

PATIENT
  Sex: Female
  Weight: 72.5755 kg

DRUGS (2)
  1. ZICAM MATRIXX [Suspect]
     Indication: NASOPHARYNGITIS
     Dosage: 3 TIMES A DAY NASAL
     Route: 045
     Dates: start: 20090612, end: 20090615
  2. . [Concomitant]

REACTIONS (3)
  - ANOSMIA [None]
  - DECREASED APPETITE [None]
  - DYSGEUSIA [None]
